FAERS Safety Report 11350561 (Version 6)
Quarter: 2015Q4

REPORT INFORMATION
  Report Type: Spontaneous
  Country: NL (occurrence: NL)
  Receive Date: 20150807
  Receipt Date: 20151201
  Transmission Date: 20160304
  Serious: Yes (Hospitalization, Other)
  Sender: FDA-Public Use
  Company Number: NL-PFIZER INC-2015260892

PATIENT
  Age: 75 Year
  Sex: Male

DRUGS (13)
  1. HYDROCORTISON /00028601/ [Concomitant]
     Active Substance: HYDROCORTISONE
     Dosage: 10 MG, 2X/DAY
  2. METOPROLOLSUCCINAAT SANDOZ [Concomitant]
     Dosage: 47.5 MG, 1X/DAY
  3. ACENOCOUMAROL [Concomitant]
     Active Substance: ACENOCOUMAROL
     Dosage: 1 MG, ACCORDING SCHEDULE THROMBOSIS SERVICE
  4. LANOXIN [Concomitant]
     Active Substance: DIGOXIN
     Dosage: 0.125 MG, 1X/DAY
  5. NIFEDIPINE SANDOZ [Concomitant]
     Active Substance: NIFEDIPINE
     Dosage: 60 MG, 1X/DAY
  6. SOMAVERT [Suspect]
     Active Substance: PEGVISOMANT
     Indication: ACROMEGALY
     Dosage: 10 MG, 1X/DAY 1 INJECTION
     Route: 058
     Dates: start: 2005
  7. ELTROXIN [Concomitant]
     Active Substance: LEVOTHYROXINE
     Dosage: 50 UG, 1X/DAY
  8. AQUA AD INIECTABILIA B BRAUN [Concomitant]
     Dosage: 10 ML, 1X/DAY
  9. SPIRONOLACTON [Concomitant]
     Active Substance: SPIRONOLACTONE
     Dosage: 25 MG, 1X/DAY
  10. CABERGOLINE SANDOZ [Concomitant]
     Active Substance: CABERGOLINE
     Dosage: 0.5 MG, 2X/WEEK
  11. FUROSEMIDE. [Concomitant]
     Active Substance: FUROSEMIDE
     Dosage: 40 MG, 2X/DAY
  12. ANDROGEL [Concomitant]
     Active Substance: TESTOSTERONE
     Dosage: 1 DF, 1X/DAY
  13. VALSARTAN SANDOZ [Concomitant]
     Active Substance: VALSARTAN
     Dosage: 320 MG, 1X/DAY

REACTIONS (3)
  - Mitral valve incompetence [Unknown]
  - Fatigue [Recovered/Resolved]
  - Renal impairment [Recovered/Resolved]

NARRATIVE: CASE EVENT DATE: 201507
